FAERS Safety Report 24230773 (Version 2)
Quarter: 2024Q3

REPORT INFORMATION
  Report Type: Spontaneous
  Country: CN (occurrence: CN)
  Receive Date: 20240821
  Receipt Date: 20240903
  Transmission Date: 20241017
  Serious: Yes (Death, Other)
  Sender: ROCHE
  Company Number: CN-BoehringerIngelheim-2024-BI-046479

PATIENT
  Age: 89 Year
  Sex: Female
  Weight: 50.0 kg

DRUGS (4)
  1. ALTEPLASE [Suspect]
     Active Substance: ALTEPLASE
     Indication: Cerebral infarction
     Route: 042
     Dates: start: 20240810, end: 20240810
  2. ALTEPLASE [Suspect]
     Active Substance: ALTEPLASE
     Route: 042
     Dates: start: 20240810, end: 20240810
  3. ALTEPLASE [Suspect]
     Active Substance: ALTEPLASE
     Route: 042
     Dates: start: 20240810, end: 20240810
  4. ALTEPLASE [Suspect]
     Active Substance: ALTEPLASE
     Route: 042
     Dates: start: 20240810, end: 20240810

REACTIONS (5)
  - Cerebral infarction [Fatal]
  - Haemorrhage [Unknown]
  - Gingival bleeding [Unknown]
  - Breast haemorrhage [Unknown]
  - Off label use [Unknown]

NARRATIVE: CASE EVENT DATE: 20240810
